FAERS Safety Report 8005122-4 (Version None)
Quarter: 2011Q4

REPORT INFORMATION
  Report Type: 
  Country: None (occurrence: None)
  Receive Date: 20111223
  Receipt Date: 20111213
  Transmission Date: 20120403
  Serious: Yes (Other)
  Sender: FDA-Public Use
  Company Number: PHHY2011US59692

PATIENT
  Sex: Female
  Weight: 19.7 kg

DRUGS (3)
  1. EXJADE [Suspect]
     Indication: IRON OVERLOAD
     Dosage: 375 MG, QD
     Route: 048
  2. EXJADE [Suspect]
     Dosage: 500 MG DAILY
     Route: 048
     Dates: start: 20111101
  3. FOLIC ACID [Concomitant]
     Indication: ANAEMIA
     Dosage: 1 MG DAILY
     Route: 048

REACTIONS (7)
  - PYREXIA [None]
  - VISUAL IMPAIRMENT [None]
  - PHARYNGITIS STREPTOCOCCAL [None]
  - COUGH [None]
  - OROPHARYNGEAL PAIN [None]
  - HEARING IMPAIRED [None]
  - EAR INJURY [None]
